FAERS Safety Report 24790113 (Version 8)
Quarter: 2025Q3

REPORT INFORMATION
  Report Type: Report from Study
  Country: KR (occurrence: KR)
  Receive Date: 20241230
  Receipt Date: 20250826
  Transmission Date: 20251020
  Serious: Yes (Hospitalization, Other)
  Sender: MYLAN
  Company Number: KR-MYLANLABS-2024M1115516

PATIENT
  Age: 60 Year
  Sex: Male
  Weight: 51.3 kg

DRUGS (33)
  1. PRETOMANID [Suspect]
     Active Substance: PRETOMANID
     Indication: Tuberculosis
     Dosage: 200 MILLIGRAM, QD
     Dates: start: 20241121, end: 20241130
  2. PRETOMANID [Suspect]
     Active Substance: PRETOMANID
     Dosage: 200 MILLIGRAM, QD
     Dates: start: 20241204, end: 20241208
  3. PRETOMANID [Suspect]
     Active Substance: PRETOMANID
     Dosage: 200 MILLIGRAM, QD
     Dates: start: 20241212, end: 20241215
  4. PRETOMANID [Suspect]
     Active Substance: PRETOMANID
     Dosage: 200 MILLIGRAM, QD
     Dates: start: 20250103
  5. BEDAQUILINE [Suspect]
     Active Substance: BEDAQUILINE
     Indication: Tuberculosis
     Dosage: 400 MILLIGRAM, QD
     Dates: start: 20241121, end: 20241201
  6. BEDAQUILINE [Suspect]
     Active Substance: BEDAQUILINE
     Dosage: 200 MILLIGRAM, QD
     Dates: start: 20241204, end: 20241206
  7. BEDAQUILINE [Suspect]
     Active Substance: BEDAQUILINE
     Dosage: 200 MILLIGRAM, QD
     Dates: start: 20241227
  8. LINEZOLID [Suspect]
     Active Substance: LINEZOLID
     Indication: Tuberculosis
     Dosage: 600 MILLIGRAM, QD
     Dates: start: 20241105, end: 20241130
  9. LINEZOLID [Suspect]
     Active Substance: LINEZOLID
     Dosage: 600 MILLIGRAM, QD
     Dates: start: 20241204, end: 20241208
  10. LINEZOLID [Suspect]
     Active Substance: LINEZOLID
     Dosage: 600 MILLIGRAM, QD
     Dates: start: 20241212, end: 20241217
  11. LINEZOLID [Suspect]
     Active Substance: LINEZOLID
     Dosage: 600 MILLIGRAM, QD
     Dates: start: 20241222, end: 20241225
  12. LINEZOLID [Suspect]
     Active Substance: LINEZOLID
     Dosage: 600 MILLIGRAM, QD
     Dates: start: 20250326, end: 20250730
  13. Moveloxin [Concomitant]
     Indication: Tuberculosis
     Dosage: 400 MILLIGRAM, QD
     Dates: start: 20241121
  14. Moveloxin [Concomitant]
     Dosage: 400 MILLIGRAM, QD
     Dates: start: 20241204, end: 20241208
  15. Moveloxin [Concomitant]
     Dosage: 400 MILLIGRAM, QD
     Dates: start: 20241212, end: 20241215
  16. Moveloxin [Concomitant]
     Dosage: 400 MILLIGRAM, QD
     Dates: start: 20241220, end: 20241221
  17. Epectra [Concomitant]
     Indication: Bronchopulmonary aspergillosis
     Dosage: 100 MILLIGRAM, BID
     Dates: start: 20241118
  18. Epectra [Concomitant]
     Dosage: 100 MILLIGRAM, BID
     Dates: start: 20241204, end: 20241208
  19. Epectra [Concomitant]
     Dosage: 100 MILLIGRAM, BID
     Dates: start: 20241212, end: 20241215
  20. Epectra [Concomitant]
     Dosage: 100 MILLIGRAM, QD
     Dates: start: 20250702
  21. PYRIDOXINE [Concomitant]
     Active Substance: PYRIDOXINE
     Indication: Prophylaxis
     Dosage: 50 MILLIGRAM, QD
     Dates: start: 20241105
  22. PYRIDOXINE [Concomitant]
     Active Substance: PYRIDOXINE
     Dosage: 20 MILLIGRAM, QD
     Dates: start: 20241204, end: 20241208
  23. PYRIDOXINE [Concomitant]
     Active Substance: PYRIDOXINE
     Dosage: 50 MILLIGRAM, QD
     Dates: start: 20241212, end: 20241215
  24. PYRIDOXINE [Concomitant]
     Active Substance: PYRIDOXINE
     Dosage: 50 MILLIGRAM, QD
     Dates: start: 20241222
  25. TEGOPRAZAN [Concomitant]
     Active Substance: TEGOPRAZAN
     Indication: Prophylaxis
     Dosage: 25 MILLIGRAM, QD
     Dates: start: 20241105
  26. TEGOPRAZAN [Concomitant]
     Active Substance: TEGOPRAZAN
     Dosage: 25 MILLIGRAM, QD
     Dates: start: 20241204, end: 20241208
  27. TEGOPRAZAN [Concomitant]
     Active Substance: TEGOPRAZAN
     Dosage: 25 MILLIGRAM, QD
     Dates: start: 20241212, end: 20241215
  28. Onseran [Concomitant]
     Indication: Nausea
     Dosage: 2 MILLIGRAM, BID
     Dates: start: 20241127, end: 20241130
  29. Tazoperan [Concomitant]
     Indication: Pneumonia
     Dosage: 4500 MILLIGRAM, BID
     Dates: start: 20250102, end: 20250102
  30. Tazoperan [Concomitant]
     Dosage: 4500 MILLIGRAM, QID
     Dates: start: 20250103, end: 20250107
  31. ITRACONAZOLE [Concomitant]
     Active Substance: ITRACONAZOLE
     Indication: Bronchopulmonary aspergillosis
  32. VORICONAZOLE [Concomitant]
     Active Substance: VORICONAZOLE
     Indication: Bronchopulmonary aspergillosis
     Dosage: 200 MILLIGRAM, QD
     Dates: start: 20250806
  33. VORICONAZOLE [Concomitant]
     Active Substance: VORICONAZOLE
     Dosage: 200 MILLIGRAM, BID
     Dates: start: 20250808

REACTIONS (8)
  - Tremor [Recovered/Resolved]
  - Asthenia [Recovered/Resolved]
  - Pneumonia [Recovered/Resolved]
  - Head discomfort [Not Recovered/Not Resolved]
  - Dysphonia [Not Recovered/Not Resolved]
  - Dysarthria [Recovered/Resolved]
  - Nausea [Recovered/Resolved]
  - Vomiting [Recovered/Resolved]

NARRATIVE: CASE EVENT DATE: 20241121
